FAERS Safety Report 7628705-X (Version None)
Quarter: 2011Q3

REPORT INFORMATION
  Report Type: 
  Country: None (occurrence: None)
  Receive Date: 20110722
  Receipt Date: 20110714
  Transmission Date: 20111222
  Serious: Yes (Hospitalization, Other)
  Sender: FDA-Public Use
  Company Number: US-ABBOTT-11P-163-0722933-00

PATIENT
  Sex: Female
  Weight: 47.216 kg

DRUGS (5)
  1. NAPROXEN (ALEVE) [Concomitant]
     Indication: MUSCULOSKELETAL STIFFNESS
  2. SUPPLEMENTS [Concomitant]
     Indication: PRODUCT USED FOR UNKNOWN INDICATION
     Dosage: DOES NOT ALWAYS TAKE DAILY
  3. HUMIRA [Suspect]
     Indication: RHEUMATOID ARTHRITIS
     Dates: start: 20070101
  4. FLOVENT [Concomitant]
     Indication: PRODUCT USED FOR UNKNOWN INDICATION
     Dosage: SUPPOSED TO USE DAILY BUT DOES NOT USE THAT OFTEN
  5. UNKNOWN INHALER [Concomitant]
     Indication: ASTHMA

REACTIONS (6)
  - JOINT ARTHROPLASTY [None]
  - INJECTION SITE HAEMATOMA [None]
  - ASTHMA [None]
  - FOOT DEFORMITY [None]
  - RHEUMATOID ARTHRITIS [None]
  - PNEUMONIA ASPIRATION [None]
